FAERS Safety Report 13848846 (Version 2)
Quarter: 2017Q3

REPORT INFORMATION
  Report Type: Spontaneous
  Country: US (occurrence: US)
  Receive Date: 20170809
  Receipt Date: 20170918
  Transmission Date: 20171127
  Serious: No
  Sender: FDA-Public Use
  Company Number: PHEH2017US023730

PATIENT
  Age: 59 Year
  Sex: Female
  Weight: 62.59 kg

DRUGS (8)
  1. AMLODIPINE [Concomitant]
     Active Substance: AMLODIPINE BESYLATE
     Indication: PRODUCT USED FOR UNKNOWN INDICATION
     Dosage: 2.5 MG, QD
     Route: 065
  2. FOLIC ACID. [Concomitant]
     Active Substance: FOLIC ACID
     Indication: ALOPECIA
     Dosage: 2 DF, BID
     Route: 065
  3. PANTOPRAZOLE [Concomitant]
     Active Substance: PANTOPRAZOLE
     Indication: ABDOMINAL DISCOMFORT
     Dosage: 40 MG, QD
     Route: 065
  4. METHOTREXATE. [Concomitant]
     Active Substance: METHOTREXATE
     Indication: OSTEOARTHRITIS
     Dosage: 2.5 MG, QW
     Route: 065
  5. TOPAMAX [Concomitant]
     Active Substance: TOPIRAMATE
     Indication: HEADACHE
     Dosage: 3 DF, BID
     Route: 065
     Dates: start: 201701
  6. MIDODRINE [Concomitant]
     Active Substance: MIDODRINE
     Indication: BLOOD PRESSURE ABNORMAL
     Dosage: 25 MG, QD
     Route: 065
  7. ESTRADIOL. [Suspect]
     Active Substance: ESTRADIOL
     Indication: OESTROGEN REPLACEMENT THERAPY
     Dosage: 0.075 MG, BIW
     Route: 062
     Dates: start: 201706
  8. BOTOX [Concomitant]
     Active Substance: ONABOTULINUMTOXINA
     Indication: MIGRAINE
     Dosage: 3 MONTHS
     Route: 065

REACTIONS (3)
  - Drug ineffective [Unknown]
  - Hot flush [Recovering/Resolving]
  - Migraine [Recovering/Resolving]

NARRATIVE: CASE EVENT DATE: 201706
